FAERS Safety Report 16725353 (Version 1)
Quarter: 2019Q4

REPORT INFORMATION
  Report Type: Spontaneous
  Country: US (occurrence: US)
  Receive Date: 20190820
  Receipt Date: 20190820
  Transmission Date: 20200122
  Serious: No
  Sender: FDA-Public Use
  Company Number: None

PATIENT
  Age: 39 Year
  Sex: Female

DRUGS (1)
  1. DALFAMPRIDINE. [Suspect]
     Active Substance: DALFAMPRIDINE
     Indication: MULTIPLE SCLEROSIS
     Route: 048

REACTIONS (6)
  - Condition aggravated [None]
  - Constipation [None]
  - Diarrhoea [None]
  - Tremor [None]
  - Musculoskeletal stiffness [None]
  - Neuropathy peripheral [None]

NARRATIVE: CASE EVENT DATE: 20190627
